FAERS Safety Report 19055342 (Version 3)
Quarter: 2021Q2

REPORT INFORMATION
  Report Type: Spontaneous
  Country: JP (occurrence: JP)
  Receive Date: 20210324
  Receipt Date: 20210422
  Transmission Date: 20210717
  Serious: Yes (Hospitalization)
  Sender: FDA-Public Use
  Company Number: JP-GLAXOSMITHKLINE-JP2021064211

PATIENT

DRUGS (2)
  1. VENTOLINE [Suspect]
     Active Substance: ALBUTEROL
     Dosage: 0.9 ML, 1D MIXED WITH BROMHEXINE HYDROCHLORIDE
     Route: 055
  2. BROMHEXINE HYDROCHLORIDE INHALATION [Concomitant]
     Dosage: 6 ML, 1D ????????
     Route: 055

REACTIONS (1)
  - Hospitalisation [Unknown]
